FAERS Safety Report 23215657 (Version 1)
Quarter: 2023Q4

REPORT INFORMATION
  Report Type: Report from Study
  Country: ES (occurrence: ES)
  Receive Date: 20231122
  Receipt Date: 20231122
  Transmission Date: 20240110
  Serious: Yes (Hospitalization)
  Sender: FDA-Public Use
  Company Number: ES-ABBVIE-5415156

PATIENT
  Age: 82 Year
  Sex: Male

DRUGS (2)
  1. CARBIDOPA\LEVODOPA [Suspect]
     Active Substance: CARBIDOPA\LEVODOPA
     Indication: Parkinson^s disease
     Route: 050
     Dates: start: 20201021
  2. CARBIDOPA\LEVODOPA [Suspect]
     Active Substance: CARBIDOPA\LEVODOPA
     Route: 050

REACTIONS (7)
  - Rhabdomyolysis [Recovering/Resolving]
  - Off label use [Not Recovered/Not Resolved]
  - Intentional device misuse [Unknown]
  - Body temperature abnormal [Recovering/Resolving]
  - Device dislocation [Not Recovered/Not Resolved]
  - Device connection issue [Unknown]
  - Fall [Recovered/Resolved]

NARRATIVE: CASE EVENT DATE: 20230901
